FAERS Safety Report 5124035-9 (Version None)
Quarter: 2006Q4

REPORT INFORMATION
  Report Type: 
  Country: None (occurrence: None)
  Receive Date: 20061010
  Receipt Date: 20061002
  Transmission Date: 20070319
  Serious: Yes (Hospitalization)
  Sender: FDA-Public Use
  Company Number: PHBS2006BR15564

PATIENT
  Age: 17 Year
  Sex: Female
  Weight: 40 kg

DRUGS (5)
  1. METHOTREXATE [Concomitant]
     Route: 037
  2. ETOPOSIDE [Concomitant]
  3. CYCLOPHOSPHAMIDE [Concomitant]
  4. GLEEVEC [Suspect]
     Indication: ACUTE LYMPHOCYTIC LEUKAEMIA RECURRENT
     Dosage: 400 MG, QD
     Route: 048
  5. GLEEVEC [Suspect]
     Dosage: 200 MG, BID
     Route: 048

REACTIONS (9)
  - ANOREXIA [None]
  - COUGH [None]
  - DRUG RESISTANCE [None]
  - FUNGAL INFECTION [None]
  - LIVER DISORDER [None]
  - LUNG INFECTION [None]
  - PYREXIA [None]
  - SINUSITIS [None]
  - VOMITING [None]
